FAERS Safety Report 24121136 (Version 2)
Quarter: 2024Q3

REPORT INFORMATION
  Report Type: Spontaneous
  Country: IN (occurrence: IN)
  Receive Date: 20240722
  Receipt Date: 20240728
  Transmission Date: 20241016
  Serious: Yes (Death)
  Sender: NOVARTIS
  Company Number: IN-002147023-NVSC2024IN149968

PATIENT
  Age: 87 Year
  Sex: Male

DRUGS (1)
  1. GLIVEC [Suspect]
     Active Substance: IMATINIB MESYLATE
     Indication: Chronic myeloid leukaemia
     Dosage: 200 MG, QD (2 X 100MG)
     Route: 048
     Dates: start: 200308

REACTIONS (1)
  - Death [Fatal]

NARRATIVE: CASE EVENT DATE: 20240719
